FAERS Safety Report 16661754 (Version 1)
Quarter: 2019Q3

REPORT INFORMATION
  Report Type: Spontaneous
  Country: US (occurrence: US)
  Receive Date: 20190619
  Receipt Date: 20190619
  Transmission Date: 20191004
  Serious: No
  Sender: FDA-Public Use
  Company Number: None

PATIENT
  Age: 65 Year
  Sex: Female

DRUGS (2)
  1. REPATHA [Suspect]
     Active Substance: EVOLOCUMAB
     Indication: PRODUCT USED FOR UNKNOWN INDICATION
  2. REPATHA [Suspect]
     Active Substance: EVOLOCUMAB
     Indication: TYPE V HYPERLIPIDAEMIA
     Dosage: ADMINISTER 3.5ML SUBCUTANEOUSLY EVERY MONTH OVER 9 MINUTES BY USING THE SINGLE-USE ON BODY INFUSER
     Route: 058
     Dates: start: 201805

REACTIONS (2)
  - Contusion [None]
  - Haemorrhage [None]
